FAERS Safety Report 4550513-7 (Version None)
Quarter: 2004Q4

REPORT INFORMATION
  Report Type: 
  Country: None (occurrence: None)
  Receive Date: 20041217
  Receipt Date: 20040923
  Transmission Date: 20050328
  Serious: No
  Sender: FDA-Public Use
  Company Number: 2004-BP-08620BP

PATIENT
  Age: 60 Year
  Sex: Male
  Weight: 146.8 kg

DRUGS (6)
  1. SPIRIVA [Suspect]
     Indication: CHRONIC OBSTRUCTIVE AIRWAYS DISEASE
     Dosage: 18 MCG (18 MCG), IH
     Route: 055
     Dates: start: 20040825, end: 20040910
  2. HYDROCHLOROTHIAZIDE [Concomitant]
  3. LISINOPRIL [Concomitant]
  4. PROZAC [Concomitant]
  5. B PACE [Concomitant]
  6. LOPID [Concomitant]

REACTIONS (1)
  - PRURITUS [None]
